FAERS Safety Report 13957994 (Version 8)
Quarter: 2020Q3

REPORT INFORMATION
  Report Type: Other
  Country: CA (occurrence: CA)
  Receive Date: 20170912
  Receipt Date: 20200930
  Transmission Date: 20201102
  Serious: Yes (Other)
  Sender: FDA-Public Use
  Company Number: CA-APOTEX-2017AP017733

PATIENT
  Age: 37 Year
  Sex: Female

DRUGS (27)
  1. ENBREL [Suspect]
     Active Substance: ETANERCEPT
     Indication: RHEUMATOID ARTHRITIS
     Dosage: UNK
     Route: 065
  2. ELAVIL [Concomitant]
     Active Substance: AMITRIPTYLINE HYDROCHLORIDE
     Indication: PRODUCT USED FOR UNKNOWN INDICATION
     Dosage: UNK
     Route: 065
  3. PREDNISONE. [Concomitant]
     Active Substance: PREDNISONE
     Indication: PRODUCT USED FOR UNKNOWN INDICATION
     Dosage: UNK
     Route: 065
  4. METHOTREXATE. [Suspect]
     Active Substance: METHOTREXATE
     Indication: RHEUMATOID ARTHRITIS
     Dosage: UNK
     Route: 058
  5. SULFASALAZINE. [Concomitant]
     Active Substance: SULFASALAZINE
     Indication: PRODUCT USED FOR UNKNOWN INDICATION
     Dosage: UNK
     Route: 065
  6. HYDROXYCHLOROQUINE [Suspect]
     Active Substance: HYDROXYCHLOROQUINE
     Indication: RHEUMATOID ARTHRITIS
     Dosage: UNK
     Route: 065
  7. PLAQUENIL                          /00072602/ [Suspect]
     Active Substance: HYDROXYCHLOROQUINE DIPHOSPHATE
     Indication: RHEUMATOID ARTHRITIS
     Dosage: UNK
     Route: 065
  8. ENBREL [Suspect]
     Active Substance: ETANERCEPT
     Dosage: 50 MG, Q.WK.
     Route: 058
  9. CYCLOSPORINE. [Suspect]
     Active Substance: CYCLOSPORINE
     Indication: RHEUMATOID ARTHRITIS
     Dosage: UNK
     Route: 065
  10. CELLCEPT [Suspect]
     Active Substance: MYCOPHENOLATE MOFETIL\MYCOPHENOLATE MOFETIL HYDROCHLORIDE
     Indication: RHEUMATOID ARTHRITIS
     Dosage: UNK
     Route: 065
  11. RITUXIMAB. [Suspect]
     Active Substance: RITUXIMAB
     Indication: RHEUMATOID ARTHRITIS
     Dosage: 1 GRAM
     Route: 042
  12. ORENCIA [Suspect]
     Active Substance: ABATACEPT
     Indication: RHEUMATOID ARTHRITIS
     Dosage: UNK
     Route: 065
  13. RITUXAN [Suspect]
     Active Substance: RITUXIMAB
     Indication: RHEUMATOID ARTHRITIS
     Dosage: UNK
     Route: 042
  14. SIMPONI [Suspect]
     Active Substance: GOLIMUMAB
     Indication: PRODUCT USED FOR UNKNOWN INDICATION
     Dosage: 50 MILLIGRAM, Q.M.T.
     Route: 058
  15. ETANERCEPT [Suspect]
     Active Substance: ETANERCEPT
     Indication: RHEUMATOID ARTHRITIS
     Dosage: UNK
     Route: 065
  16. TOBRAMYCIN. [Concomitant]
     Active Substance: TOBRAMYCIN
     Indication: PRODUCT USED FOR UNKNOWN INDICATION
     Dosage: UNK
     Route: 065
  17. XELJANZ [Concomitant]
     Active Substance: TOFACITINIB CITRATE
     Indication: RHEUMATOID ARTHRITIS
     Dosage: 5 MG, BID
     Route: 048
  18. MYCOPHENOLATE MOFETIL. [Suspect]
     Active Substance: MYCOPHENOLATE MOFETIL
     Indication: RHEUMATOID ARTHRITIS
     Dosage: UNK
     Route: 065
  19. RITUXAN [Suspect]
     Active Substance: RITUXIMAB
     Dosage: 1 G, UNK
     Route: 042
  20. DOXYCYCLINE. [Concomitant]
     Active Substance: DOXYCYCLINE
     Indication: PRODUCT USED FOR UNKNOWN INDICATION
     Dosage: UNK
     Route: 065
  21. AMITRIPTYLINE HYDROCHLORIDE. [Concomitant]
     Active Substance: AMITRIPTYLINE HYDROCHLORIDE
     Indication: PRODUCT USED FOR UNKNOWN INDICATION
     Dosage: UNK
     Route: 065
  22. AZATHIOPRINE. [Suspect]
     Active Substance: AZATHIOPRINE
     Indication: RHEUMATOID ARTHRITIS
     Dosage: UNK
     Route: 065
  23. GOLD [Suspect]
     Active Substance: GOLD
     Indication: PRODUCT USED FOR UNKNOWN INDICATION
     Dosage: UNK
     Route: 065
  24. PENICILLAMINE [Suspect]
     Active Substance: PENICILLAMINE
     Indication: PRODUCT USED FOR UNKNOWN INDICATION
     Dosage: UNK
     Route: 065
  25. HUMIRA [Suspect]
     Active Substance: ADALIMUMAB
     Indication: PRODUCT USED FOR UNKNOWN INDICATION
     Dosage: 40 MG, 1 EVERY 2 WEEK
     Route: 058
  26. IMURAN [Suspect]
     Active Substance: AZATHIOPRINE
     Indication: RHEUMATOID ARTHRITIS
     Dosage: UNK
     Route: 065
  27. ORENCIA [Suspect]
     Active Substance: ABATACEPT
     Dosage: 125 MG, Q.WK.
     Route: 058

REACTIONS (29)
  - Chest pain [Unknown]
  - Musculoskeletal pain [Unknown]
  - Headache [Unknown]
  - Toxicity to various agents [Unknown]
  - Overlap syndrome [Unknown]
  - Red blood cell sedimentation rate abnormal [Unknown]
  - Acute kidney injury [Unknown]
  - Contraindicated product administered [Unknown]
  - Dyspnoea [Unknown]
  - Treatment failure [Unknown]
  - Drug intolerance [Unknown]
  - Nausea [Unknown]
  - Diarrhoea [Unknown]
  - Arthralgia [Unknown]
  - Elbow deformity [Unknown]
  - Joint swelling [Unknown]
  - SLE arthritis [Unknown]
  - Pain in jaw [Unknown]
  - Jaw fracture [Unknown]
  - Fatigue [Unknown]
  - Neck pain [Unknown]
  - Weight decreased [Unknown]
  - Arthritis [Unknown]
  - Pain in extremity [Unknown]
  - Bone disorder [Unknown]
  - C-reactive protein abnormal [Unknown]
  - Drug hypersensitivity [Unknown]
  - Proteinuria [Unknown]
  - Vasculitis [Unknown]
